FAERS Safety Report 8756951 (Version 1)
Quarter: 2012Q4

REPORT INFORMATION
  Report Type: 
  Country: US (occurrence: US)
  Receive Date: 20120828
  Receipt Date: 20120828
  Transmission Date: 20130627
  Serious: No
  Sender: FDA-Public Use
  Company Number: US-BAYER-2012-088250

PATIENT
  Age: 71 Year
  Sex: Male

DRUGS (2)
  1. AVELOX IV [Suspect]
     Indication: PNEUMONIA PRIMARY ATYPICAL
     Dosage: 400 mg, QD
     Route: 048
     Dates: start: 20120813
  2. MUCINEX [Concomitant]

REACTIONS (2)
  - Nail disorder [Not Recovered/Not Resolved]
  - Atypical pneumonia [Not Recovered/Not Resolved]
